FAERS Safety Report 17130433 (Version 1)
Quarter: 2019Q4

REPORT INFORMATION
  Report Type: Report from Study
  Country: CA (occurrence: CA)
  Receive Date: 20191209
  Receipt Date: 20191209
  Transmission Date: 20200122
  Serious: Yes (Death, Hospitalization, Other)
  Sender: FDA-Public Use
  Company Number: CA-PFIZER INC-2019524284

PATIENT
  Sex: Male
  Weight: 105 kg

DRUGS (15)
  1. ESBRIET [Suspect]
     Active Substance: PIRFENIDONE
     Indication: IDIOPATHIC PULMONARY FIBROSIS
     Dosage: 267 MG, 3X/DAY
     Route: 048
  2. PANTOLOC CONTROL [Concomitant]
     Active Substance: PANTOPRAZOLE SODIUM
     Dosage: UNK
  3. ACETYLSALICYLIC ACID [Concomitant]
     Active Substance: ASPIRIN
     Dosage: 81 MG, UNK
     Route: 065
  4. SIMBICORT TURBUHALER [Concomitant]
     Active Substance: BUDESONIDE\FORMOTEROL FUMARATE
     Dosage: UNK
  5. ESBRIET [Suspect]
     Active Substance: PIRFENIDONE
     Dosage: 534 MG, 3X/DAY
     Route: 048
  6. ESBRIET [Suspect]
     Active Substance: PIRFENIDONE
     Dosage: 801 MG, 3X/DAY
     Route: 048
  7. SALBUTAMOL [Concomitant]
     Active Substance: ALBUTEROL
     Dosage: UNK
  8. GABAPENTIN. [Concomitant]
     Active Substance: GABAPENTIN
     Dosage: UNK
  9. SPIRIVA [Concomitant]
     Active Substance: TIOTROPIUM BROMIDE MONOHYDRATE
     Dosage: UNK
  10. FENTANYL CITRATE. [Suspect]
     Active Substance: FENTANYL CITRATE
     Indication: NEUROPATHY PERIPHERAL
     Dosage: UNK
  11. EZETROL [Concomitant]
     Active Substance: EZETIMIBE
     Dosage: UNK
  12. LASIX [Concomitant]
     Active Substance: FUROSEMIDE
     Dosage: UNK
  13. FENTANYL CITRATE. [Suspect]
     Active Substance: FENTANYL CITRATE
     Indication: ARTHRALGIA
  14. CLOPIDOGREL BISULFATE. [Concomitant]
     Active Substance: CLOPIDOGREL BISULFATE
     Dosage: UNK
  15. CYMBALTA [Concomitant]
     Active Substance: DULOXETINE HYDROCHLORIDE
     Dosage: UNK

REACTIONS (9)
  - Angina pectoris [Fatal]
  - Fall [Fatal]
  - Visual impairment [Fatal]
  - Dyspnoea [Fatal]
  - Angina unstable [Fatal]
  - Dizziness [Fatal]
  - Cardiac failure congestive [Fatal]
  - Chest pain [Fatal]
  - Oxygen saturation decreased [Fatal]
